FAERS Safety Report 13474457 (Version 2)
Quarter: 2017Q4

REPORT INFORMATION
  Report Type: Report from Study
  Country: US (occurrence: US)
  Receive Date: 20170424
  Receipt Date: 20171016
  Transmission Date: 20180320
  Serious: Yes (Hospitalization)
  Sender: FDA-Public Use
  Company Number: US-PFIZER INC-2017164287

PATIENT
  Age: 10 Year
  Sex: Female
  Weight: 35.7 kg

DRUGS (9)
  1. INCB018424 [Suspect]
     Active Substance: RUXOLITINIB
     Indication: ACUTE LYMPHOCYTIC LEUKAEMIA
     Dosage: 25 MG, BID
     Route: 048
     Dates: start: 20170220
  2. VINCRISTINE SULFATE. [Suspect]
     Active Substance: VINCRISTINE SULFATE
     Indication: ACUTE LYMPHOCYTIC LEUKAEMIA
     Dosage: 1.8 MG, ONCE
     Route: 042
     Dates: start: 20170115
  3. MERCAPTOPURINE. [Suspect]
     Active Substance: MERCAPTOPURINE
     Indication: ACUTE LYMPHOCYTIC LEUKAEMIA
     Dosage: 75 MG QD MONDAY-SATURDAY
     Route: 048
     Dates: start: 20170220
  4. MERCAPTOPURINE. [Suspect]
     Active Substance: MERCAPTOPURINE
     Dosage: 50 MG QD SUNDAY
     Route: 048
     Dates: start: 20170220
  5. ZOFRAN ODT [Concomitant]
     Active Substance: ONDANSETRON HYDROCHLORIDE
     Dosage: 4 MG/ML, UNK
     Dates: start: 20170201
  6. BACTRIM [Concomitant]
     Active Substance: SULFAMETHOXAZOLE\TRIMETHOPRIM
     Dosage: [SULFAMETHOXAZOLE 400 MG]/ [TRIMETHOPRIM 80 MG]
     Dates: start: 20170220
  7. METHOTREXATE SODIUM. [Suspect]
     Active Substance: METHOTREXATE SODIUM
     Indication: ACUTE LYMPHOCYTIC LEUKAEMIA
     Dosage: 15 MG, ONCE
     Route: 037
     Dates: start: 20170115
  8. CAFCIT [Concomitant]
     Active Substance: CAFFEINE CITRATE
     Dosage: UNK
     Dates: start: 20170217
  9. CAFFEINE. [Concomitant]
     Active Substance: CAFFEINE
     Dosage: UNK
     Dates: start: 20170201

REACTIONS (2)
  - Anaemia [Recovered/Resolved]
  - Condition aggravated [Recovered/Resolved]

NARRATIVE: CASE EVENT DATE: 20170318
